FAERS Safety Report 21508256 (Version 1)
Quarter: 2022Q4

REPORT INFORMATION
  Report Type: Report from Study
  Country: US (occurrence: US)
  Receive Date: 20221026
  Receipt Date: 20221026
  Transmission Date: 20230113
  Serious: Yes (Life-Threatening, Hospitalization, Other)
  Sender: FDA-Public Use
  Company Number: US-MYLANLABS-2022M1117498

PATIENT
  Age: 63 Year
  Sex: Female
  Weight: 79.7 kg

DRUGS (18)
  1. LYRICA [Suspect]
     Active Substance: PREGABALIN
     Indication: Product used for unknown indication
     Dosage: UNK
     Route: 065
     Dates: start: 20220607, end: 202207
  2. LYRICA [Suspect]
     Active Substance: PREGABALIN
     Dosage: UNK
     Route: 065
     Dates: start: 202207, end: 20220815
  3. RALINEPAG [Suspect]
     Active Substance: RALINEPAG
     Indication: Pulmonary arterial hypertension
     Dosage: UNK
     Route: 065
     Dates: start: 20220531
  4. RALINEPAG [Suspect]
     Active Substance: RALINEPAG
     Dosage: UNK
     Route: 065
     Dates: start: 20220725
  5. PRILOSEC [Concomitant]
     Active Substance: OMEPRAZOLE MAGNESIUM
     Dosage: 20 MILLIGRAM
     Route: 065
     Dates: start: 201510
  6. PLAQUENIL [Concomitant]
     Active Substance: HYDROXYCHLOROQUINE SULFATE
     Dosage: 200 MILLIGRAM
     Route: 065
     Dates: start: 2017
  7. VITAMIN C [Concomitant]
     Active Substance: ASCORBIC ACID
     Dosage: UNK
     Route: 065
     Dates: start: 202106
  8. BUMEX [Concomitant]
     Active Substance: BUMETANIDE
     Dosage: INCREASED TO 2 MG IN THE MORNING AND 1 MG IN THE EVENING
     Route: 065
     Dates: start: 202111
  9. VITAMIN D3 [Concomitant]
     Active Substance: CHOLECALCIFEROL
     Dosage: UNK
     Route: 065
     Dates: start: 202111
  10. OPSUMIT [Concomitant]
     Active Substance: MACITENTAN
     Dosage: 10 MILLIGRAM
     Route: 065
     Dates: start: 20210716
  11. VITAMINS [Concomitant]
     Active Substance: VITAMINS
     Dosage: UNK
     Route: 065
     Dates: start: 202106
  12. FISH OIL [Concomitant]
     Active Substance: FISH OIL
     Dosage: UNK
     Route: 065
     Dates: start: 202106
  13. K-TAB [Concomitant]
     Active Substance: POTASSIUM CHLORIDE
     Dosage: UNK
     Route: 065
     Dates: start: 202110
  14. REVATIO [Concomitant]
     Active Substance: SILDENAFIL CITRATE
     Dosage: 20 MILLIGRAM
     Route: 065
     Dates: start: 202107
  15. PROTOPIC [Concomitant]
     Active Substance: TACROLIMUS
     Dosage: UNK
     Route: 065
     Dates: start: 202105
  16. ALDACTONE [Concomitant]
     Active Substance: SPIRONOLACTONE
     Dosage: 25 MILLIGRAM
     Route: 065
     Dates: start: 202201
  17. ALEVE [Concomitant]
     Active Substance: NAPROXEN SODIUM
     Dosage: 220 MILLIGRAM
     Route: 065
  18. PHENERGAN [Concomitant]
     Active Substance: PROMETHAZINE HYDROCHLORIDE
     Dosage: 25 MILLIGRAM
     Route: 065

REACTIONS (2)
  - Acute respiratory failure [Recovered/Resolved]
  - Disease progression [Recovered/Resolved]
